FAERS Safety Report 7368932-2 (Version None)
Quarter: 2011Q1

REPORT INFORMATION
  Report Type: 
  Country: None (occurrence: None)
  Receive Date: 20110314
  Receipt Date: 20110228
  Transmission Date: 20110831
  Serious: Yes (Other)
  Sender: FDA-Public Use
  Company Number: 840587

PATIENT
  Age: 2 Year
  Sex: Female
  Weight: 14 kg

DRUGS (28)
  1. METHOTREXATE [Suspect]
     Indication: PRODUCT USED FOR UNKNOWN INDICATION
     Dosage: 3GRAM, ONCE, INTRAVENOUS (NOT OTHERWISE SPECIFIED)
     Route: 042
  2. PENTAMIDINE ISETHIONATE [Concomitant]
  3. TOBRAMYCIN [Concomitant]
  4. METHOTREXATE [Concomitant]
  5. (L-ASPARAGINASE) [Concomitant]
  6. LANSOPRAZOLE [Concomitant]
  7. (MINERAL OIL EMULSION) [Concomitant]
  8. TIMENTIN [Concomitant]
  9. METHYLPREDNISOLONE [Concomitant]
  10. PREDNISONE [Concomitant]
  11. VINCRISTINE SULFATE [Concomitant]
  12. MERCAPTOPURINE [Concomitant]
  13. POLYETHYLENE GLYCOL [Concomitant]
  14. CYTARABINE [Concomitant]
  15. ALLOPURINOL [Concomitant]
  16. DIMENHYDRINATE [Concomitant]
  17. DOXORUBICIN HCL FOR INJECTION, USP (DOXORUBICIN HYDROCHLORIDE) [Concomitant]
  18. HYDROCORTISONE [Concomitant]
  19. MORPHINE SULFATE [Concomitant]
  20. NYSTATIN [Concomitant]
  21. OMEPRAZOLE [Concomitant]
  22. ONDANSETRON [Concomitant]
  23. RANITIDINE [Concomitant]
  24. FOLIC ACID [Concomitant]
  25. ACETAMINOPHEN [Concomitant]
  26. (DOCUSATE SODIUM) [Concomitant]
  27. FUROSEMIDE [Concomitant]
  28. PHYTONADIONE [Concomitant]

REACTIONS (5)
  - BILIRUBIN CONJUGATED INCREASED [None]
  - ASPARTATE AMINOTRANSFERASE INCREASED [None]
  - ALANINE AMINOTRANSFERASE INCREASED [None]
  - HEPATIC ENZYME INCREASED [None]
  - GAMMA-GLUTAMYLTRANSFERASE INCREASED [None]
